FAERS Safety Report 10413998 (Version 1)
Quarter: 2014Q3

REPORT INFORMATION
  Report Type: Spontaneous
  Country: US (occurrence: US)
  Receive Date: 20140827
  Receipt Date: 20140827
  Transmission Date: 20150326
  Serious: No
  Sender: FDA-Public Use
  Company Number: US-GALDERMA-US14001656

PATIENT
  Sex: Male

DRUGS (1)
  1. METROGEL [Suspect]
     Active Substance: METRONIDAZOLE
     Dosage: 1%
     Route: 061
     Dates: start: 1989

REACTIONS (1)
  - Neuropathy peripheral [Recovering/Resolving]
